FAERS Safety Report 19821162 (Version 7)
Quarter: 2022Q1

REPORT INFORMATION
  Report Type: Spontaneous
  Country: US (occurrence: US)
  Receive Date: 20210913
  Receipt Date: 20220206
  Transmission Date: 20220423
  Serious: No
  Sender: FDA-Public Use
  Company Number: NVSC2021US207248

PATIENT
  Sex: Female

DRUGS (1)
  1. COSENTYX [Suspect]
     Active Substance: SECUKINUMAB
     Indication: Psoriasis
     Dosage: UNK UNK, QW
     Route: 058

REACTIONS (5)
  - Nasal congestion [Unknown]
  - Head discomfort [Unknown]
  - Erythema [Unknown]
  - Psoriasis [Unknown]
  - Drug ineffective [Unknown]
